FAERS Safety Report 9339787 (Version 1)
Quarter: 2013Q2

REPORT INFORMATION
  Report Type: Spontaneous
  Country: US (occurrence: None)
  Receive Date: 20130607
  Receipt Date: 20130607
  Transmission Date: 20140414
  Serious: Yes (Life-Threatening)
  Sender: FDA-Public Use
  Company Number: None

PATIENT
  Age: 47 Year
  Sex: Male
  Weight: 81.65 kg

DRUGS (1)
  1. SUTENT [Suspect]
     Indication: MALIGNANT NERVOUS SYSTEM NEOPLASM
     Dosage: 4 WEEKS ON /2 WEEKS OFF
     Route: 048
     Dates: start: 20130315, end: 20130425

REACTIONS (2)
  - Intestinal perforation [None]
  - Peritonitis [None]
